FAERS Safety Report 15973546 (Version 1)
Quarter: 2019Q1

REPORT INFORMATION
  Report Type: Spontaneous
  Country: CA (occurrence: CA)
  Receive Date: 20190216
  Receipt Date: 20190216
  Transmission Date: 20190418
  Serious: Yes (Other)
  Sender: FDA-Public Use
  Company Number: CA-TEVA-2019-CA-1011356

PATIENT
  Sex: Female

DRUGS (2)
  1. TAMOXIFEN [Suspect]
     Active Substance: TAMOXIFEN
     Route: 065
     Dates: start: 201612, end: 201808
  2. FASLODEX [Concomitant]
     Active Substance: FULVESTRANT
     Dates: start: 201810

REACTIONS (2)
  - Drug resistance [Unknown]
  - Disease progression [Unknown]
